FAERS Safety Report 5127659-8 (Version None)
Quarter: 2006Q4

REPORT INFORMATION
  Report Type: 
  Country: None (occurrence: None)
  Receive Date: 20061016
  Receipt Date: 20060609
  Transmission Date: 20070319
  Serious: Yes (Other)
  Sender: FDA-Public Use
  Company Number: PHEH2006US07648

PATIENT
  Age: 64 Year
  Sex: Female
  Weight: 54.875 kg

DRUGS (4)
  1. CHEMOTHERAPEUTICS,OTHER [Concomitant]
  2. ZOMETA [Suspect]
     Indication: METASTASES TO BONE
     Dosage: 4 MG, Q 4WK
     Dates: start: 20040101, end: 20060101
  3. VALTREX [Concomitant]
     Indication: HERPES ZOSTER
  4. AMBIEN [Concomitant]
     Indication: SLEEP DISORDER

REACTIONS (10)
  - BONE DISORDER [None]
  - ORAL PAIN [None]
  - ORAL SOFT TISSUE DISORDER [None]
  - OSTEONECROSIS [None]
  - PAIN IN JAW [None]
  - RASH PUSTULAR [None]
  - SOFT TISSUE INFECTION [None]
  - SWELLING [None]
  - TOOTH EXTRACTION [None]
  - TOOTH INFECTION [None]
